FAERS Safety Report 9442660 (Version 2)
Quarter: 2013Q3

REPORT INFORMATION
  Report Type: Spontaneous
  Country: US (occurrence: US)
  Receive Date: 20130806
  Receipt Date: 20130826
  Transmission Date: 20140515
  Serious: Yes (Other)
  Sender: FDA-Public Use
  Company Number: US-SANOFI-AVENTIS-2013SA078729

PATIENT
  Age: 48 Year
  Sex: Female
  Weight: 92.5 kg

DRUGS (18)
  1. LANTUS [Suspect]
     Route: 058
  2. DITROPAN [Concomitant]
     Route: 065
  3. PLAVIX [Concomitant]
     Route: 065
  4. METFORMIN [Concomitant]
     Dosage: FREQUENCY: 2 IN AM AND 1AT PM
     Route: 065
  5. LAMICTAL [Concomitant]
     Route: 065
  6. COREG [Concomitant]
     Route: 065
  7. ASPIRIN [Concomitant]
     Route: 065
  8. ZANTAC [Concomitant]
     Route: 065
  9. NORCO [Concomitant]
     Dosage: DOSE: 10/325
     Route: 065
  10. KLONOPIN [Concomitant]
     Route: 065
  11. LASIX [Concomitant]
     Route: 065
  12. SALBUTAMOL [Concomitant]
     Dosage: SOLUTION FOR NEBULIZER
  13. PROVENTIL [Concomitant]
     Dosage: INHALER AS NEEDED
  14. NOVOLIN [Concomitant]
     Route: 065
  15. FISH OIL [Concomitant]
     Route: 065
  16. NITROGLYCERIN TRANSDERMAL SYSTEM [Concomitant]
     Route: 065
  17. FENOFIBRATE [Concomitant]
     Route: 065
  18. SIMVASTATIN [Concomitant]
     Route: 065

REACTIONS (5)
  - Lung neoplasm malignant [Unknown]
  - Fungal skin infection [Not Recovered/Not Resolved]
  - Rash [Not Recovered/Not Resolved]
  - Pain [Not Recovered/Not Resolved]
  - Burning sensation [Not Recovered/Not Resolved]
